FAERS Safety Report 9001500 (Version 2)
Quarter: 2013Q2

REPORT INFORMATION
  Report Type: Spontaneous
  Country: US (occurrence: US)
  Receive Date: 20130107
  Receipt Date: 20130418
  Transmission Date: 20140414
  Serious: Yes (Hospitalization, Other)
  Sender: FDA-Public Use
  Company Number: US-009507513-1301USA000320

PATIENT
  Sex: Female
  Weight: 113.38 kg

DRUGS (3)
  1. NUVARING [Suspect]
     Indication: PRODUCT USED FOR UNKNOWN INDICATION
     Dosage: UNK
     Dates: start: 20060210, end: 200603
  2. NUVARING [Suspect]
     Dosage: UNK
     Dates: start: 20090320, end: 20091225
  3. NUVARING [Suspect]
     Dosage: UNK
     Dates: end: 20101204

REACTIONS (8)
  - Pulmonary embolism [Recovered/Resolved]
  - Weight increased [Unknown]
  - Micturition urgency [Unknown]
  - Vaginal infection [Unknown]
  - Viral upper respiratory tract infection [Unknown]
  - Depression [Unknown]
  - Joint injury [Unknown]
  - Exposure during pregnancy [Unknown]
